FAERS Safety Report 7133993-2 (Version None)
Quarter: 2010Q4

REPORT INFORMATION
  Report Type: 
  Country: None (occurrence: None)
  Receive Date: 20101117
  Receipt Date: 20101109
  Transmission Date: 20110411
  Serious: Yes (Hospitalization)
  Sender: FDA-Public Use
  Company Number: 2010MA004368

PATIENT
  Age: 83 Year
  Sex: Female

DRUGS (10)
  1. ACETAMINOPHEN AND CODEINE PHOSPHATE [Suspect]
     Indication: PAIN
  2. TRAMADOL HYDROCHLORIDE [Suspect]
     Dosage: 50 MG
  3. PAREGORIC LIQUID USP (ALPHARMA) (PAREGORIC) [Suspect]
     Dosage: 5 MG
  4. OXYCODONE HCL [Suspect]
     Dosage: 2.5 MG
  5. DEXTROMORAMIDE [Suspect]
     Dosage: 5 MG
  6. FENTANYL [Suspect]
     Dosage: 200 UG
  7. METHADONE LINCTUS (NO PREF. NAME) [Suspect]
     Indication: COUGH
  8. CELECOXIB [Concomitant]
  9. CORTICOSTEROIDS [Concomitant]
  10. PARACETAMOL [Concomitant]

REACTIONS (2)
  - DRUG HYPERSENSITIVITY [None]
  - METASTASES TO LUNG [None]
